FAERS Safety Report 19570427 (Version 1)
Quarter: 2021Q3

REPORT INFORMATION
  Report Type: Spontaneous
  Country: US (occurrence: US)
  Receive Date: 20210715
  Receipt Date: 20210715
  Transmission Date: 20211014
  Serious: Yes (Other)
  Sender: FDA-Public Use
  Company Number: US-BAUSCH-BL-2021-023167

PATIENT
  Sex: Male

DRUGS (3)
  1. VITAMINS [Concomitant]
     Active Substance: VITAMINS
     Indication: PRODUCT USED FOR UNKNOWN INDICATION
     Route: 065
  2. LUMIFY [Suspect]
     Active Substance: BRIMONIDINE TARTRATE
     Indication: OCULAR HYPERAEMIA
     Dosage: 1 TO 2 DROPS IN EACH EYE EVERY DAY; STARTED 3 OR MORE MONTHS AGO
     Route: 047
     Dates: start: 2021, end: 20210701
  3. COLLAGEN [Concomitant]
     Active Substance: COLLAGEN
     Indication: PRODUCT USED FOR UNKNOWN INDICATION
     Route: 065

REACTIONS (8)
  - Therapeutic product effect decreased [Unknown]
  - Cerebral disorder [Unknown]
  - Fatigue [Unknown]
  - Lacrimation increased [Unknown]
  - Headache [Unknown]
  - Sleep disorder [Unknown]
  - Vision blurred [Unknown]
  - Hallucination [Unknown]

NARRATIVE: CASE EVENT DATE: 2021
